FAERS Safety Report 5189215-5 (Version None)
Quarter: 2006Q4

REPORT INFORMATION
  Report Type: 
  Country: None (occurrence: None)
  Receive Date: 20061215
  Receipt Date: 20061205
  Transmission Date: 20070319
  Serious: Yes (Death, Hospitalization, Other)
  Sender: FDA-Public Use
  Company Number: 2006128897

PATIENT
  Age: 70 Year
  Sex: Male
  Weight: 83.4619 kg

DRUGS (9)
  1. CHANTIX [Suspect]
     Dosage: 1 MG (1 MG, 1 IN 1 D), ORAL
     Route: 048
     Dates: start: 20060919, end: 20061001
  2. OXYGEN (OXYGEN) [Concomitant]
  3. PRAVACHOL [Concomitant]
  4. ACIPHEX [Concomitant]
  5. PAXIL CR [Concomitant]
  6. WARFARIN SODIUM [Concomitant]
  7. FOSINOPRIL SODIUM [Concomitant]
  8. ALBUTEROL [Concomitant]
  9. ATROVENT [Concomitant]

REACTIONS (10)
  - ABDOMINAL PAIN [None]
  - ANAEMIA [None]
  - CHRONIC OBSTRUCTIVE PULMONARY DISEASE [None]
  - DYSPNOEA [None]
  - EPISTAXIS [None]
  - HYPOTENSION [None]
  - INTERNATIONAL NORMALISED RATIO DECREASED [None]
  - NASAL DRYNESS [None]
  - RESPIRATORY FAILURE [None]
  - RETROPERITONEAL HAEMORRHAGE [None]
